FAERS Safety Report 19738697 (Version 1)
Quarter: 2021Q3

REPORT INFORMATION
  Report Type: Spontaneous
  Country: DE (occurrence: DE)
  Receive Date: 20210823
  Receipt Date: 20210823
  Transmission Date: 20211014
  Serious: Yes (Hospitalization)
  Sender: FDA-Public Use
  Company Number: DE-MYLANLABS-2021M1054163

PATIENT
  Age: 81 Year
  Sex: Female

DRUGS (17)
  1. ATROVENT [Concomitant]
     Active Substance: IPRATROPIUM BROMIDE
     Dosage: UNK (20 ML, 1?1?1?0, INHALAT)
     Route: 055
  2. ASPIRIN. [Concomitant]
     Active Substance: ASPIRIN
     Dosage: UNK (100 MG, 0?1?0?0, TABLETTEN)
  3. SALBUTAMOL [Concomitant]
     Active Substance: ALBUTEROL
     Dosage: UNK (5 MG, 1?1?1?0, INHALAT)
     Route: 055
  4. NITRENDIPIN [Concomitant]
     Active Substance: NITRENDIPINE
     Dosage: UNK (20 MG, 1?0?0?1, TABLETTEN)
  5. VALSARTAN. [Concomitant]
     Active Substance: VALSARTAN
     Dosage: UNK (160 MG, 1?0?0?1, TABLETTEN)
  6. CARVEDILOL. [Concomitant]
     Active Substance: CARVEDILOL
     Dosage: UNK (12.5 MG, 2?0?0?2, TABLETTEN)
  7. TORASEMID [Concomitant]
     Active Substance: TORSEMIDE
     Dosage: UNK (10 MG, 1?0?0?0, TABLETTEN)
  8. PANTOPRAZOL                        /01263201/ [Concomitant]
     Active Substance: PANTOPRAZOLE
     Dosage: UNK (40 MG, 1?0?0?0, TABLETTEN)
  9. BERODUAL [Concomitant]
     Active Substance: FENOTEROL HYDROBROMIDE\IPRATROPIUM BROMIDE
     Dosage: UNK (50/21 ?G, BEDARF, DOSIERAEROSOL)
     Route: 055
  10. NEPRESOL                           /00007602/ [Concomitant]
     Active Substance: HYDRALAZINE HYDROCHLORIDE
     Dosage: UNK (25 MG, 1?0?0?1, TABLETTEN)
  11. PREDNISOLONE. [Suspect]
     Active Substance: PREDNISOLONE
     Indication: PRODUCT USED FOR UNKNOWN INDICATION
     Dosage: UNK (10 MG, 3?0?1?0, TABLETTEN)
  12. MOXONIDIN [Concomitant]
     Active Substance: MOXONIDINE
     Dosage: UNK (0.4 MG, 0?0?1?0, BEUTEL/PULVER)
  13. URAPIDIL [Concomitant]
     Active Substance: URAPIDIL
     Dosage: UNK (60 MG, 1?1?0?1, RETARD?KAPSELN)
  14. MOVICOL [Concomitant]
     Active Substance: POLYETHYLENE GLYCOL 3350\POTASSIUM CHLORIDE\SODIUM BICARBONATE\SODIUM CHLORIDE
     Dosage: UNK (1?0?0?0, TABLETTEN)
  15. SPIRONOLACTON [Concomitant]
     Active Substance: SPIRONOLACTONE
     Dosage: UNK (50 MG, 1?0?0?0, TABLETTEN)
  16. ACETYLCYSTEINE. [Concomitant]
     Active Substance: ACETYLCYSTEINE
     Dosage: UNK (600 MG, 1?1?0?0, TABLETTEN)
  17. METAMIZOL                          /06276701/ [Concomitant]
     Active Substance: METAMIZOLE
     Dosage: UNK (30?30?30?0, TROPFEN)

REACTIONS (2)
  - Product prescribing error [Unknown]
  - Dyspnoea [Unknown]

NARRATIVE: CASE EVENT DATE: 20201209
